FAERS Safety Report 6127933-2 (Version None)
Quarter: 2009Q1

REPORT INFORMATION
  Report Type: 
  Country: None (occurrence: None)
  Receive Date: 20090319
  Receipt Date: 20090316
  Transmission Date: 20090719
  Serious: Yes (Hospitalization)
  Sender: FDA-Public Use
  Company Number: CERZ-1000523

PATIENT
  Age: 13 Year
  Sex: Male
  Weight: 61.4 kg

DRUGS (5)
  1. CEREZYME [Suspect]
     Indication: GAUCHER'S DISEASE
     Dosage: 47 U/KG, Q2W, INTRAVENOUS
     Route: 042
     Dates: start: 20010101
  2. KEPPRA [Concomitant]
  3. VALPROATE SODIUM [Concomitant]
  4. PROPRANOLOL [Concomitant]
  5. CLONAZEPAM [Concomitant]

REACTIONS (14)
  - ACTIVITIES OF DAILY LIVING IMPAIRED [None]
  - AREFLEXIA [None]
  - BRADYKINESIA [None]
  - COGNITIVE DISORDER [None]
  - DYSARTHRIA [None]
  - FALL [None]
  - GAIT DISTURBANCE [None]
  - GAZE PALSY [None]
  - INCONTINENCE [None]
  - MYOCLONUS [None]
  - NEUROLOGICAL DECOMPENSATION [None]
  - SOMNOLENCE [None]
  - STATUS EPILEPTICUS [None]
  - TREMOR [None]
